FAERS Safety Report 8603512-X (Version None)
Quarter: 2012Q3

REPORT INFORMATION
  Report Type: 
  Country: None (occurrence: None)
  Receive Date: 20120817
  Receipt Date: 20120810
  Transmission Date: 20120928
  Serious: Yes (Other)
  Sender: FDA-Public Use
  Company Number: US-ROCHE-788911

PATIENT
  Sex: Female
  Weight: 63.56 kg

DRUGS (4)
  1. ACCUTANE [Suspect]
     Route: 048
  2. MINOCYCLINE HCL [Concomitant]
     Indication: ACNE
  3. ACCUTANE [Suspect]
     Indication: ACNE
     Route: 048
     Dates: start: 20010101, end: 20020101
  4. ACCUTANE [Suspect]
     Route: 048
     Dates: start: 20040201, end: 20040601

REACTIONS (11)
  - ANAL FISSURE [None]
  - INFLAMMATORY BOWEL DISEASE [None]
  - BLOOD CHOLESTEROL INCREASED [None]
  - SUICIDE ATTEMPT [None]
  - EMOTIONAL DISTRESS [None]
  - COLITIS [None]
  - DEPRESSION [None]
  - BLOOD TRIGLYCERIDES INCREASED [None]
  - SUICIDAL IDEATION [None]
  - HAEMORRHOIDS [None]
  - CROHN'S DISEASE [None]
